FAERS Safety Report 19853947 (Version 1)
Quarter: 2021Q3

REPORT INFORMATION
  Report Type: Report from Study
  Country: US (occurrence: US)
  Receive Date: 20210920
  Receipt Date: 20210920
  Transmission Date: 20211014
  Serious: Yes (Hospitalization)
  Sender: FDA-Public Use
  Company Number: US-BRISTOL-MYERS SQUIBB COMPANY-BMS-2021-092257

PATIENT
  Age: 50 Year
  Sex: Female
  Weight: 151.04 kg

DRUGS (6)
  1. BABY ASPIRIN [Suspect]
     Active Substance: ASPIRIN
     Indication: PRODUCT USED FOR UNKNOWN INDICATION
     Dosage: UNK
     Route: 065
  2. APIXABAN [Suspect]
     Active Substance: APIXABAN
     Dosage: 2.5 MILLIGRAM, BID
     Route: 048
     Dates: start: 20210913
  3. CALCIUM 600 + VITAMIN D [Concomitant]
     Active Substance: CALCIUM\VITAMIN D
     Indication: PRODUCT USED FOR UNKNOWN INDICATION
     Dosage: 25 MICROGRAM
     Route: 065
  4. MAGNESIUM [Concomitant]
     Active Substance: MAGNESIUM
     Indication: PRODUCT USED FOR UNKNOWN INDICATION
     Dosage: 250 MILLIGRAM
     Route: 065
  5. APIXABAN [Suspect]
     Active Substance: APIXABAN
     Indication: PULMONARY EMBOLISM
     Dosage: 5 MILLIGRAM, BID
     Route: 048
     Dates: start: 20210813
  6. APIXABAN [Suspect]
     Active Substance: APIXABAN
     Dosage: HALF 5MG, BID
     Route: 048
     Dates: start: 20210909

REACTIONS (13)
  - Insomnia [Unknown]
  - Wrong technique in product usage process [Unknown]
  - Headache [Unknown]
  - Chest discomfort [Unknown]
  - Paraesthesia [Unknown]
  - Euphoric mood [Unknown]
  - Agitation [Unknown]
  - Eye pain [Unknown]
  - Pain [Unknown]
  - Chest pain [Unknown]
  - Restlessness [Unknown]
  - Back pain [Unknown]
  - Arthralgia [Unknown]

NARRATIVE: CASE EVENT DATE: 202109
